FAERS Safety Report 8981796 (Version 1)
Quarter: 2012Q4

REPORT INFORMATION
  Report Type: 
  Country: AR (occurrence: AR)
  Receive Date: 20121223
  Receipt Date: 20121223
  Transmission Date: 20130627
  Serious: Yes (Hospitalization)
  Sender: FDA-Public Use
  Company Number: PHHY2012AR118281

PATIENT
  Sex: Male

DRUGS (1)
  1. DIOVAN [Suspect]
     Indication: HYPERTENSION
     Dosage: 1 DF, (160 mg) daily
     Route: 048
     Dates: start: 201210, end: 201212

REACTIONS (2)
  - Limb discomfort [Recovering/Resolving]
  - Metabolic disorder [Unknown]
